FAERS Safety Report 6916583-3 (Version None)
Quarter: 2010Q3

REPORT INFORMATION
  Report Type: 
  Country: None (occurrence: None)
  Receive Date: 20100810
  Receipt Date: 20100729
  Transmission Date: 20110219
  Serious: Yes (Hospitalization)
  Sender: FDA-Public Use
  Company Number: BR-MEDIMMUNE-MEDI-0011461

PATIENT
  Sex: Male
  Weight: 3.24 kg

DRUGS (4)
  1. SYNAGIS [Suspect]
     Indication: CARDIAC DISORDER
     Route: 030
     Dates: start: 20100622, end: 20100622
  2. CAPTOPRIL [Concomitant]
     Indication: ANTICOAGULANT THERAPY
     Route: 048
     Dates: start: 20100521
  3. FUROSEMIDE [Concomitant]
     Indication: DIURETIC THERAPY
     Route: 048
     Dates: start: 20100521
  4. PREDNISOLONE [Concomitant]
     Indication: ANTIALLERGIC THERAPY
     Route: 048
     Dates: start: 20100722, end: 20100730

REACTIONS (3)
  - BRONCHIOLITIS [None]
  - FATIGUE [None]
  - RESPIRATORY RATE INCREASED [None]
